FAERS Safety Report 11747141 (Version 1)
Quarter: 2015Q4

REPORT INFORMATION
  Report Type: Spontaneous
  Country: IT (occurrence: IT)
  Receive Date: 20151117
  Receipt Date: 20151117
  Transmission Date: 20160304
  Serious: Yes (Other)
  Sender: FDA-Public Use
  Company Number: IT-TEVA-608071ACC

PATIENT
  Age: 70 Year
  Sex: Female
  Weight: 64 kg

DRUGS (3)
  1. OXALIPLATINO SUN - 5MG/ML CONCENTRATO PER SOLUZIONE PER INFUSIONE [Suspect]
     Active Substance: OXALIPLATIN
     Indication: COLON CANCER STAGE IV
     Dosage: 97 MG CYCLICAL, CONCENTRATE FOR SOLUTION FOR INFUSION
     Route: 042
     Dates: start: 20141106, end: 20151015
  2. AVASTIN - 400 MG DI CONCENTRATO PER SOLUZIONE PER INFUSIONE [Concomitant]
     Indication: PRODUCT USED FOR UNKNOWN INDICATION
     Dosage: 320 MG, CONCENTRATE FOR SOLUTION FOR INFUSION
     Route: 042
     Dates: start: 20141106, end: 20151029
  3. FLUOROURACIL. [Suspect]
     Active Substance: FLUOROURACIL
     Indication: COLON CANCER STAGE IV
     Dosage: 3214 MG CYCLICAL
     Route: 041
     Dates: start: 20141106, end: 20151029

REACTIONS (2)
  - Neuralgia [Unknown]
  - Asthenia [Unknown]

NARRATIVE: CASE EVENT DATE: 20151022
